FAERS Safety Report 5158228-1 (Version None)
Quarter: 2006Q4

REPORT INFORMATION
  Report Type: 
  Country: None (occurrence: None)
  Receive Date: 20061121
  Receipt Date: 20061121
  Transmission Date: 20070319
  Serious: Yes (Hospitalization)
  Sender: FDA-Public Use
  Company Number: None

PATIENT
  Age: 73 Year
  Sex: Female
  Weight: 53 kg

DRUGS (1)
  1. NEURONTIN [Suspect]
     Dosage: 400 MG DAILY PO
     Route: 048

REACTIONS (4)
  - ASTHENIA [None]
  - DIALYSIS [None]
  - MENTAL STATUS CHANGES [None]
  - RENAL FAILURE [None]
